FAERS Safety Report 8611686-X (Version None)
Quarter: 2012Q3

REPORT INFORMATION
  Report Type: 
  Country: None (occurrence: None)
  Receive Date: 20120822
  Receipt Date: 20120814
  Transmission Date: 20120928
  Serious: Yes (Other)
  Sender: FDA-Public Use
  Company Number: BR-JNJFOC-20120809654

PATIENT
  Sex: Female
  Weight: 86 kg

DRUGS (2)
  1. LISADOR [Concomitant]
     Indication: PAIN IN EXTREMITY
     Route: 065
     Dates: start: 20120802
  2. ACETAMINOPHEN W/ CODEINE [Suspect]
     Indication: PAIN IN EXTREMITY
     Route: 048
     Dates: start: 20120802, end: 20120814

REACTIONS (2)
  - INTESTINAL RESECTION [None]
  - DRUG INEFFECTIVE [None]
